FAERS Safety Report 24892872 (Version 1)
Quarter: 2025Q1

REPORT INFORMATION
  Report Type: Spontaneous
  Country: JP (occurrence: JP)
  Receive Date: 20250128
  Receipt Date: 20250128
  Transmission Date: 20250409
  Serious: Yes (Other)
  Sender: Steriscience PTE
  Company Number: JP-STERISCIENCE B.V.-2025-ST-000122

PATIENT
  Age: 28 Year
  Sex: Female

DRUGS (8)
  1. BUPIVACAINE [Suspect]
     Active Substance: BUPIVACAINE
     Indication: Spinal anaesthesia
     Route: 065
  2. FENTANYL [Suspect]
     Active Substance: FENTANYL
     Indication: Spinal anaesthesia
     Route: 065
  3. MORPHINE [Suspect]
     Active Substance: MORPHINE
     Indication: Spinal anaesthesia
     Route: 065
  4. NEUART [Suspect]
     Active Substance: ANTITHROMBIN III HUMAN
     Indication: Antithrombin III decreased
     Route: 042
  5. ATROPINE [Suspect]
     Active Substance: ATROPINE
     Indication: Product used for unknown indication
     Route: 065
  6. ATROPINE [Suspect]
     Active Substance: ATROPINE
     Route: 065
  7. PHENYLEPHRINE [Suspect]
     Active Substance: PHENYLEPHRINE
     Indication: Product used for unknown indication
     Route: 065
  8. DROPERIDOL [Suspect]
     Active Substance: DROPERIDOL
     Indication: Nausea
     Route: 065

REACTIONS (3)
  - Hypoxia [Unknown]
  - Nausea [Unknown]
  - Maternal exposure during delivery [Unknown]
